FAERS Safety Report 8940644 (Version 1)
Quarter: 2012Q4

REPORT INFORMATION
  Report Type: 
  Country: AU (occurrence: AU)
  Receive Date: 20121203
  Receipt Date: 20121203
  Transmission Date: 20130627
  Serious: Yes (Other)
  Sender: FDA-Public Use
  Company Number: AU-ROCHE-1162609

PATIENT

DRUGS (2)
  1. AVASTIN [Suspect]
     Indication: MACULAR DEGENERATION
     Route: 050
  2. AVASTIN [Suspect]
     Indication: OFF LABEL USE

REACTIONS (1)
  - Macular degeneration [Unknown]
